FAERS Safety Report 5069641-5 (Version None)
Quarter: 2006Q3

REPORT INFORMATION
  Report Type: 
  Country: None (occurrence: None)
  Receive Date: 20060803
  Receipt Date: 20060726
  Transmission Date: 20061208
  Serious: Yes (Life-Threatening, Hospitalization)
  Sender: FDA-Public Use
  Company Number: US-ROCHE-457154

PATIENT
  Age: 53 Year
  Sex: Male

DRUGS (5)
  1. PEGASYS [Suspect]
     Dosage: STRENGHT REPORTED AS 180MCG/0.5CC.
     Route: 058
     Dates: start: 20060413, end: 20060721
  2. RIBASPHERE [Suspect]
     Route: 048
     Dates: start: 20060413, end: 20060721
  3. RISPERDAL [Concomitant]
     Indication: SCHIZOPHRENIA
     Dosage: DOSING: 3 MG IN THE MORNING.
     Route: 048
  4. COGENTIN [Concomitant]
     Indication: SCHIZOPHRENIA
     Route: 048
  5. TRAZODONE HCL [Concomitant]
     Indication: INSOMNIA
     Dosage: REPORTED AS TRAZADONE. DOSING: 200 MG AT NIGHT.
     Route: 048

REACTIONS (4)
  - CONDITION AGGRAVATED [None]
  - SCHIZOPHRENIA [None]
  - SUICIDE ATTEMPT [None]
  - TREATMENT NONCOMPLIANCE [None]
